FAERS Safety Report 6017087-5 (Version None)
Quarter: 2008Q4

REPORT INFORMATION
  Report Type: 
  Country: None (occurrence: None)
  Receive Date: 20081223
  Receipt Date: 20081222
  Transmission Date: 20090506
  Serious: Yes (Death)
  Sender: FDA-Public Use
  Company Number: GB-JNJFOC-20081205294

PATIENT
  Age: 51 Year
  Sex: Male

DRUGS (1)
  1. FENTANYL-100 [Suspect]
     Indication: ANALGESIA
     Route: 062

REACTIONS (1)
  - ARRHYTHMIA [None]
